FAERS Safety Report 20780576 (Version 2)
Quarter: 2022Q2

REPORT INFORMATION
  Report Type: Spontaneous
  Country: GR (occurrence: GR)
  Receive Date: 20220504
  Receipt Date: 20220512
  Transmission Date: 20220721
  Serious: Yes (Other)
  Sender: FDA-Public Use
  Company Number: GR-CELLTRION INC.-2022GR005600

PATIENT

DRUGS (1)
  1. INFLIXIMAB [Suspect]
     Active Substance: INFLIXIMAB
     Indication: Psoriatic arthropathy
     Dosage: 4X100MG/ 8 WEEKS
     Route: 042
     Dates: start: 20220121

REACTIONS (4)
  - Coronavirus infection [Recovered/Resolved]
  - Treatment delayed [Unknown]
  - Off label use [Unknown]
  - Intentional product use issue [Unknown]
